FAERS Safety Report 12983343 (Version 2)
Quarter: 2016Q4

REPORT INFORMATION
  Report Type: Spontaneous
  Country: TR (occurrence: TR)
  Receive Date: 20161129
  Receipt Date: 20161206
  Transmission Date: 20170207
  Serious: Yes (Hospitalization)
  Sender: FDA-Public Use
  Company Number: TR-SA-2016SA212883

PATIENT
  Age: 56 Year
  Sex: Female
  Weight: 78 kg

DRUGS (10)
  1. ATOR [Concomitant]
     Active Substance: ATORVASTATIN CALCIUM
     Route: 048
  2. LANTUS SOLOSTAR [Suspect]
     Active Substance: INSULIN GLARGINE
     Indication: DIABETES MELLITUS
     Route: 058
     Dates: start: 20161108, end: 20161119
  3. SOLOSTAR [Concomitant]
     Active Substance: DEVICE
     Indication: DIABETES MELLITUS
     Route: 058
     Dates: start: 20161108, end: 20161119
  4. NOVOMIX [Concomitant]
     Active Substance: INSULIN ASPART
  5. APIDRA SOLOSTAR [Suspect]
     Active Substance: INSULIN GLULISINE
     Indication: DIABETES MELLITUS
     Route: 058
     Dates: start: 20161108, end: 20161119
  6. SOLOSTAR [Concomitant]
     Active Substance: DEVICE
     Indication: DIABETES MELLITUS
     Route: 058
     Dates: start: 20161108, end: 20161119
  7. GLUKOFEN [Concomitant]
     Active Substance: METFORMIN HYDROCHLORIDE
     Route: 048
  8. ECOPIRIN [Concomitant]
     Active Substance: ASPIRIN
     Route: 048
  9. ARLEC [Concomitant]
     Route: 048
  10. HUMULIN NOS [Concomitant]
     Active Substance: INSULIN HUMAN

REACTIONS (2)
  - Pruritus [Recovered/Resolved]
  - Skin lesion [Recovered/Resolved]

NARRATIVE: CASE EVENT DATE: 20161112
